FAERS Safety Report 9582184 (Version 2)
Quarter: 2013Q4

REPORT INFORMATION
  Report Type: Spontaneous
  Country: US (occurrence: US)
  Receive Date: 20131002
  Receipt Date: 20131002
  Transmission Date: 20140711
  Serious: No
  Sender: FDA-Public Use
  Company Number: US-AMGEN-USASP2013043646

PATIENT
  Age: 58 Year
  Sex: Female
  Weight: 136 kg

DRUGS (20)
  1. ENBREL [Suspect]
     Indication: PSORIASIS
     Dosage: UNK
     Route: 058
     Dates: start: 2007, end: 2007
  2. HUMIRA [Suspect]
     Dosage: UNK
     Route: 058
     Dates: start: 2009, end: 2010
  3. TRIAMCINOLONE [Concomitant]
     Dosage: UNK
  4. STELARA [Concomitant]
     Dosage: UNK
  5. ATORVASTATIN [Concomitant]
     Dosage: UNK
  6. CLOBETASOL [Concomitant]
     Dosage: UNK
  7. CYMBALTA [Concomitant]
     Dosage: UNK
  8. DIGOXIN [Concomitant]
     Dosage: UNK
  9. FOLIC ACID [Concomitant]
     Dosage: UNK
  10. FUROSEMIDE [Concomitant]
     Dosage: UNK
  11. LEVOTHYROXIN [Concomitant]
     Dosage: UNK
  12. LORTAB                             /00607101/ [Concomitant]
     Dosage: UNK
  13. LOSARTAN [Concomitant]
     Dosage: UNK
  14. MELOXICAM [Concomitant]
     Dosage: UNK
  15. METFORMIN [Concomitant]
     Dosage: UNK
  16. METHOTREXATE [Concomitant]
     Dosage: UNK
  17. METOPROLOL [Concomitant]
     Dosage: UNK
  18. OMEPRAZOLE [Concomitant]
     Dosage: UNK
  19. SPIRONOLACTONE [Concomitant]
     Dosage: UNK
  20. VICTOZA [Concomitant]
     Dosage: UNK

REACTIONS (3)
  - Dermatitis allergic [Unknown]
  - Rash generalised [Recovered/Resolved]
  - Injection site reaction [Unknown]
